FAERS Safety Report 19867373 (Version 1)
Quarter: 2021Q3

REPORT INFORMATION
  Report Type: Spontaneous
  Country: SK (occurrence: SK)
  Receive Date: 20210921
  Receipt Date: 20210921
  Transmission Date: 20211014
  Serious: Yes (Death, Other)
  Sender: FDA-Public Use
  Company Number: SK-BAUSCH-BL-2021-031545

PATIENT
  Age: 56 Year
  Sex: Male

DRUGS (3)
  1. DEXAMETHASONE. [Suspect]
     Active Substance: DEXAMETHASONE
     Indication: PRODUCT USED FOR UNKNOWN INDICATION
     Route: 065
  2. BORTEZOMIB. [Suspect]
     Active Substance: BORTEZOMIB
     Indication: PLASMA CELL MYELOMA
     Route: 065
  3. CYCLOPHOSPHAMIDE. [Suspect]
     Active Substance: CYCLOPHOSPHAMIDE
     Indication: PLASMA CELL MYELOMA
     Route: 065

REACTIONS (10)
  - Septic shock [Fatal]
  - Colitis [Fatal]
  - Multiple organ dysfunction syndrome [Fatal]
  - Fungal oesophagitis [Fatal]
  - Infection in an immunocompromised host [Fatal]
  - Haemorrhagic infarction [Fatal]
  - Erysipelas [Fatal]
  - Azotaemia [Fatal]
  - Myelosuppression [Fatal]
  - Gastrointestinal haemorrhage [Fatal]
